FAERS Safety Report 9677710 (Version 3)
Quarter: 2013Q4

REPORT INFORMATION
  Report Type: Spontaneous
  Country: IT (occurrence: IT)
  Receive Date: 20131108
  Receipt Date: 20131210
  Transmission Date: 20140711
  Serious: Yes (Hospitalization, Other)
  Sender: FDA-Public Use
  Company Number: IT-AMGEN-ITASP2013078442

PATIENT
  Age: 74 Year
  Sex: Female

DRUGS (1)
  1. PROLIA [Suspect]
     Indication: OSTEOPOROSIS
     Dosage: 60 MG, CYCLICAL
     Route: 058
     Dates: start: 20120424, end: 20131031

REACTIONS (4)
  - Dysarthria [Recovered/Resolved]
  - Hemiparesis [Recovered/Resolved]
  - Paraesthesia oral [Recovered/Resolved]
  - Formication [Unknown]
